FAERS Safety Report 13193770 (Version 1)
Quarter: 2017Q1

REPORT INFORMATION
  Report Type: Spontaneous
  Country: FR (occurrence: FR)
  Receive Date: 20170207
  Receipt Date: 20170207
  Transmission Date: 20170428
  Serious: Yes (Hospitalization)
  Sender: FDA-Public Use
  Company Number: FR-TEVA-734463ROM

PATIENT
  Age: 72 Year
  Sex: Male

DRUGS (1)
  1. OXALIPLATINE TEVA [Suspect]
     Active Substance: OXALIPLATIN
     Indication: RECTAL NEOPLASM
     Route: 042
     Dates: start: 20170104, end: 20170104

REACTIONS (4)
  - Oxygen saturation decreased [Recovered/Resolved]
  - Chills [Recovered/Resolved]
  - Hypertension [Recovered/Resolved]
  - Pyrexia [Recovered/Resolved]

NARRATIVE: CASE EVENT DATE: 20170104
